FAERS Safety Report 19249343 (Version 3)
Quarter: 2021Q3

REPORT INFORMATION
  Report Type: Spontaneous
  Country: US (occurrence: US)
  Receive Date: 20210512
  Receipt Date: 20210729
  Transmission Date: 20211014
  Serious: Yes (Disabling, Other)
  Sender: FDA-Public Use
  Company Number: US-PFIZER INC-2021476201

PATIENT
  Age: 59 Year
  Sex: Female

DRUGS (1)
  1. XELJANZ XR [Suspect]
     Active Substance: TOFACITINIB CITRATE
     Dosage: 11 MG

REACTIONS (7)
  - Limb injury [Unknown]
  - Fall [Unknown]
  - Back injury [Unknown]
  - Rotator cuff syndrome [Unknown]
  - Peripheral swelling [Unknown]
  - Gait inability [Unknown]
  - Haemorrhage [Unknown]
